FAERS Safety Report 17723034 (Version 1)
Quarter: 2020Q2

REPORT INFORMATION
  Report Type: Spontaneous
  Country: US (occurrence: US)
  Receive Date: 20200429
  Receipt Date: 20200429
  Transmission Date: 20200714
  Serious: Yes (Hospitalization, Other)
  Sender: FDA-Public Use
  Company Number: US-SUNOVION-2020SUN001317

PATIENT
  Sex: Male

DRUGS (5)
  1. APTIOM [Suspect]
     Active Substance: ESLICARBAZEPINE ACETATE
     Dosage: UNK
     Route: 048
  2. ONFI [Concomitant]
     Active Substance: CLOBAZAM
  3. FYCOMPA [Concomitant]
     Active Substance: PERAMPANEL
  4. APTIOM [Suspect]
     Active Substance: ESLICARBAZEPINE ACETATE
     Dosage: UNK, QID
     Route: 048
  5. DILANTIN [Concomitant]
     Active Substance: PHENYTOIN

REACTIONS (2)
  - Generalised tonic-clonic seizure [Recovered/Resolved]
  - Off label use [Unknown]
